FAERS Safety Report 17547837 (Version 2)
Quarter: 2020Q1

REPORT INFORMATION
  Report Type: Spontaneous
  Country: US (occurrence: US)
  Receive Date: 20200316
  Receipt Date: 20200328
  Transmission Date: 20200409
  Serious: Yes (Other)
  Sender: FDA-Public Use
  Company Number: US-TEVA-2020-US-1204064

PATIENT
  Age: 40 Year
  Sex: Female

DRUGS (4)
  1. AMPHETAMINE [Concomitant]
     Active Substance: AMPHETAMINE
     Indication: ATTENTION DEFICIT/HYPERACTIVITY DISORDER
     Route: 065
  2. HYDROCODONE [Suspect]
     Active Substance: HYDROCODONE
     Indication: MIGRAINE
     Route: 065
  3. LOPERAMIDE [Suspect]
     Active Substance: LOPERAMIDE
     Dosage: RECEIVING FOR PAST 6 MONTHS; 100 TABLETS OF 2 MG LOPERAMIDE DAILY
     Route: 065
  4. ALPRAZOLAM. [Concomitant]
     Active Substance: ALPRAZOLAM
     Indication: ANXIETY
     Route: 065

REACTIONS (8)
  - Rhinorrhoea [Recovering/Resolving]
  - Intentional overdose [Unknown]
  - Irritability [Recovering/Resolving]
  - Drug withdrawal syndrome [Recovering/Resolving]
  - Drug abuse [Recovering/Resolving]
  - Mydriasis [Recovering/Resolving]
  - Restlessness [Recovering/Resolving]
  - Drug dependence [Recovering/Resolving]
